FAERS Safety Report 4803911-8 (Version None)
Quarter: 2005Q3

REPORT INFORMATION
  Report Type: 
  Country: None (occurrence: None)
  Receive Date: 20050920
  Receipt Date: 20050606
  Transmission Date: 20060218
  Serious: No
  Sender: FDA-Public Use
  Company Number: US-YAMANOUCHI-YPA20050273

PATIENT
  Age: 77 Year
  Sex: Female

DRUGS (1)
  1. VESICARE [Suspect]
     Indication: HYPERTONIC BLADDER
     Dosage: 5 MG TOTAL PO
     Route: 048
     Dates: start: 20050524, end: 20040525

REACTIONS (2)
  - RASH [None]
  - URTICARIA [None]
